FAERS Safety Report 26157780 (Version 1)
Quarter: 2025Q4

REPORT INFORMATION
  Report Type: Spontaneous
  Country: US (occurrence: None)
  Receive Date: 20251212
  Receipt Date: 20251212
  Transmission Date: 20260118
  Serious: Yes (Disabling)
  Sender: FDA-CTU
  Company Number: None

PATIENT
  Age: 64 Year
  Sex: Male
  Weight: 96.3 kg

DRUGS (20)
  1. ZEPBOUND [Suspect]
     Active Substance: TIRZEPATIDE
     Indication: Weight decreased
     Dosage: OTHER QUANTITY : 1 INJECTION(S);?OTHER FREQUENCY : WEEKLY;
     Route: 058
     Dates: start: 20250501, end: 20250730
  2. Allopurinol 100mg QD [Concomitant]
  3. Amitriptyline 50mg QD [Concomitant]
  4. ASA 325mg QD [Concomitant]
  5. Duloxetine 60 mg QD [Concomitant]
  6. Eplerenone 50mg QD [Concomitant]
  7. Famotidine 20mg QD [Concomitant]
  8. HCTZ 25mg QD [Concomitant]
  9. Hydroxyurea 500mg QD [Concomitant]
  10. Lorazepam .5mg QD [Concomitant]
  11. Losartan 100 mg QD [Concomitant]
  12. Metoprolol 25mg QD [Concomitant]
  13. Morphine Sulfate 15mg BID [Concomitant]
  14. Ondansetron 8mg PRN [Concomitant]
  15. Oxycodone/APAP 10/325 PRN [Concomitant]
  16. Phospha 250 BID [Concomitant]
  17. Potassium Cit 1620mcg BID [Concomitant]
  18. Tadalafil 20mg PRN [Concomitant]
  19. Tamsulosin 8mg QD [Concomitant]
  20. VITAMIN D3 [Concomitant]
     Active Substance: CHOLECALCIFEROL

REACTIONS (2)
  - Colitis ulcerative [None]
  - Abnormal faeces [None]

NARRATIVE: CASE EVENT DATE: 20250803
